FAERS Safety Report 8551122-5 (Version None)
Quarter: 2012Q3

REPORT INFORMATION
  Report Type: 
  Country: None (occurrence: None)
  Receive Date: 20120730
  Receipt Date: 20110826
  Transmission Date: 20120928
  Serious: No
  Sender: FDA-Public Use
  Company Number: US-ALLERGAN-1111470US

PATIENT
  Sex: Female

DRUGS (3)
  1. VITAMIN A AND D [Concomitant]
     Indication: VITAMIN SUPPLEMENTATION
  2. LUMIGAN [Suspect]
     Indication: GLAUCOMA
     Dosage: 1 GTT, QPM
     Route: 047
     Dates: start: 20110601
  3. TIMOLOL MALEATE [Concomitant]

REACTIONS (2)
  - ALOPECIA [None]
  - FAECES DISCOLOURED [None]
